FAERS Safety Report 14165988 (Version 1)
Quarter: 2017Q4

REPORT INFORMATION
  Report Type: Spontaneous
  Country: US (occurrence: None)
  Receive Date: 20171106
  Receipt Date: 20171106
  Transmission Date: 20180321
  Serious: No
  Sender: FDA-Public Use
  Company Number: None

PATIENT
  Age: 70 Year
  Sex: Male

DRUGS (1)
  1. HUMIRA [Suspect]
     Active Substance: ADALIMUMAB
     Indication: COLITIS ULCERATIVE
     Route: 058
     Dates: start: 20170201, end: 20171014

REACTIONS (6)
  - Nerve injury [None]
  - Diarrhoea [None]
  - Therapy cessation [None]
  - Herpes zoster [None]
  - Haematochezia [None]
  - Burning sensation [None]
